FAERS Safety Report 8107172 (Version 2)
Quarter: 2013Q1

REPORT INFORMATION
  Report Type: Spontaneous
  Country: US (occurrence: US)
  Receive Date: 20110825
  Receipt Date: 20130111
  Transmission Date: 20140127
  Serious: Yes (Hospitalization)
  Sender: FDA-Public Use
  Company Number: US-ELI_LILLY_AND_COMPANY-US200906006019

PATIENT
  Sex: Male

DRUGS (6)
  1. BYETTA [Suspect]
     Dosage: 10 UG, BID
     Route: 058
     Dates: start: 200706
  2. HUMULIN                            /00806401/ [Concomitant]
     Dosage: UNK
  3. PANOXYL [Concomitant]
  4. AVANDIA [Concomitant]
     Dosage: 4 MG, UNK
     Route: 048
  5. PREVACID [Concomitant]
     Dosage: 30 MG, BID
     Route: 048
  6. NOVOLIN R [Concomitant]
     Dosage: 100 UNK, UNK

REACTIONS (3)
  - Pancreatitis acute [Unknown]
  - Renal failure [Unknown]
  - Off label use [Unknown]
